FAERS Safety Report 9905498 (Version 2)
Quarter: 2014Q1

REPORT INFORMATION
  Report Type: Spontaneous
  Country: FR (occurrence: FR)
  Receive Date: 20140218
  Receipt Date: 20140218
  Transmission Date: 20141002
  Serious: Yes (Hospitalization, Other)
  Sender: FDA-Public Use
  Company Number: FR-TEVA-452457ISR

PATIENT
  Sex: Female

DRUGS (6)
  1. COPAXONE [Suspect]
     Dosage: WITH THE AUTOJECT AT 8MM
     Route: 058
     Dates: start: 20130520
  2. METFORMIN [Concomitant]
     Indication: DIABETES MELLITUS
  3. ANAFRANIL 25MG [Concomitant]
     Indication: DEPRESSION
     Dosage: 1 DOSAGE FORMS DAILY; IN THE EVENING
  4. TEMESTA 2.5MG [Concomitant]
     Indication: DEPRESSION
     Dosage: IN THE MORNING
  5. ANTIDIABETIC (NOS) [Concomitant]
     Indication: DIABETES MELLITUS
     Dosage: 1 DOSAGE FORMS DAILY;
     Route: 048
  6. IMUREL [Concomitant]

REACTIONS (6)
  - Multiple sclerosis relapse [Recovered/Resolved]
  - Eyelid ptosis [Recovered/Resolved]
  - Skin plaque [Recovered/Resolved]
  - Pruritus generalised [Recovered/Resolved]
  - Pigmentation disorder [Recovered/Resolved]
  - Burning sensation [Recovered/Resolved]
